FAERS Safety Report 13586897 (Version 1)
Quarter: 2017Q2

REPORT INFORMATION
  Report Type: Spontaneous
  Country: US (occurrence: US)
  Receive Date: 20170526
  Receipt Date: 20170526
  Transmission Date: 20170830
  Serious: Yes (Hospitalization)
  Sender: FDA-Public Use
  Company Number: US-ROCHE-750896

PATIENT
  Sex: Male

DRUGS (1)
  1. VALCYTE [Suspect]
     Active Substance: VALGANCICLOVIR HYDROCHLORIDE
     Indication: IMMUNODEFICIENCY COMMON VARIABLE
     Dosage: OTHER INDICATIONS: RECURRECT CMV GASTRITIS AND GOOD^S SYNDROME
     Route: 048

REACTIONS (1)
  - Bone marrow failure [Unknown]
